FAERS Safety Report 11679606 (Version 2)
Quarter: 2015Q4

REPORT INFORMATION
  Report Type: Spontaneous
  Country: US (occurrence: US)
  Receive Date: 20151027
  Receipt Date: 20151104
  Transmission Date: 20160304
  Serious: No
  Sender: FDA-Public Use
  Company Number: US-ELI_LILLY_AND_COMPANY-US201008007611

PATIENT
  Sex: Female

DRUGS (1)
  1. FORTEO [Suspect]
     Active Substance: TERIPARATIDE
     Indication: OSTEOPOROSIS
     Dosage: 20 UG, DAILY (1/D)
     Dates: start: 200903

REACTIONS (8)
  - Thyroid disorder [Unknown]
  - Malaise [Recovered/Resolved]
  - Balance disorder [Recovering/Resolving]
  - Urethral carbuncle [Unknown]
  - Pruritus [Unknown]
  - Bone pain [Recovered/Resolved]
  - Hormone level abnormal [Unknown]
  - Gait disturbance [Unknown]
